FAERS Safety Report 4879928-4 (Version None)
Quarter: 2006Q1

REPORT INFORMATION
  Report Type: 
  Country: None (occurrence: None)
  Receive Date: 20060113
  Receipt Date: 20050324
  Transmission Date: 20060701
  Serious: Yes (Hospitalization)
  Sender: FDA-Public Use
  Company Number: US-MERCK-0503USA04603

PATIENT
  Age: 71 Year
  Sex: Male

DRUGS (4)
  1. VIOXX [Suspect]
     Indication: ARTHRITIS
     Route: 048
     Dates: start: 20020101, end: 20051023
  2. ACETAMINOPHEN [Concomitant]
     Route: 065
  3. ASPIRIN [Concomitant]
     Route: 048
  4. PRINIVIL [Concomitant]
     Route: 048

REACTIONS (5)
  - ANGINA UNSTABLE [None]
  - APPENDIX DISORDER [None]
  - EMOTIONAL DISORDER [None]
  - HYPERTENSION [None]
  - MYOCARDIAL INFARCTION [None]
